FAERS Safety Report 16054194 (Version 1)
Quarter: 2019Q1

REPORT INFORMATION
  Report Type: Spontaneous
  Country: US (occurrence: US)
  Receive Date: 20190308
  Receipt Date: 20190308
  Transmission Date: 20190418
  Serious: Yes (Other)
  Sender: FDA-Public Use
  Company Number: US-009507513-1707USA003796

PATIENT
  Sex: Female
  Weight: 101.1 kg

DRUGS (9)
  1. MONTELUKAST SODIUM. [Suspect]
     Active Substance: MONTELUKAST SODIUM
     Dosage: 10 MILLIGRAM, QD
     Route: 048
     Dates: start: 2019, end: 201902
  2. OMEGA-3 ACIDS [Concomitant]
     Active Substance: OMEGA-3 FATTY ACIDS
     Dosage: UNK
  3. OLMESARTAN MEDOXOMIL (+) HYDROCHLOROTHIAZIDE [Suspect]
     Active Substance: HYDROCHLOROTHIAZIDE\OLMESARTAN MEDOXOMIL
     Dosage: 1 DF [40/25 MG], QD
     Dates: end: 2019
  4. DOXYCYCLINE. [Suspect]
     Active Substance: DOXYCYCLINE
     Indication: WHEEZING
     Dosage: 100 MG, BID
     Route: 048
     Dates: start: 2019, end: 201902
  5. OLMESARTAN MEDOXOMIL (+) HYDROCHLOROTHIAZIDE [Suspect]
     Active Substance: HYDROCHLOROTHIAZIDE\OLMESARTAN MEDOXOMIL
     Indication: HYPERTENSION
     Dosage: 1 DF [40/25 MG], QD
     Route: 048
     Dates: start: 2017, end: 201706
  6. PREDNISONE. [Suspect]
     Active Substance: PREDNISONE
     Indication: WHEEZING
     Dosage: 10 MG, QD
     Route: 048
     Dates: start: 2019, end: 201902
  7. METFORMIN [Concomitant]
     Active Substance: METFORMIN HYDROCHLORIDE
     Dosage: UNK
  8. OLMESARTAN MEDOXOMIL (+) HYDROCHLOROTHIAZIDE [Suspect]
     Active Substance: HYDROCHLOROTHIAZIDE\OLMESARTAN MEDOXOMIL
     Indication: HYPERTENSION
     Dosage: 1 DF [40/25 MG], QD
     Dates: start: 2017
  9. DIOVAN [Suspect]
     Active Substance: VALSARTAN
     Indication: HYPERTENSION
     Dosage: 320 MG, QD
     Route: 048
     Dates: start: 201706

REACTIONS (17)
  - Hypoaesthesia oral [Not Recovered/Not Resolved]
  - Blood glucose increased [Unknown]
  - Pruritus [Unknown]
  - Arthritis [Unknown]
  - Rash [Unknown]
  - Chest pain [Unknown]
  - Joint swelling [Unknown]
  - Eye pain [Unknown]
  - Chest pain [Unknown]
  - Haemorrhage [Unknown]
  - Hypoaesthesia oral [Unknown]
  - Cough [Unknown]
  - Palpitations [Unknown]
  - Musculoskeletal pain [Unknown]
  - Wheezing [Unknown]
  - Dry throat [Unknown]
  - Dizziness [Not Recovered/Not Resolved]

NARRATIVE: CASE EVENT DATE: 2015
